FAERS Safety Report 7170876-6 (Version None)
Quarter: 2010Q4

REPORT INFORMATION
  Report Type: 
  Country: None (occurrence: None)
  Receive Date: 20101217
  Receipt Date: 20101208
  Transmission Date: 20110411
  Serious: Yes (Life-Threatening, Hospitalization)
  Sender: FDA-Public Use
  Company Number: NL-GENZYME-CLOF-1001325

PATIENT
  Sex: Female
  Weight: 70 kg

DRUGS (5)
  1. EVOLTRA [Suspect]
     Indication: ACUTE LEUKAEMIA
     Dosage: 18 MG, QDX3
     Route: 042
     Dates: start: 20100908, end: 20100912
  2. CYTARABINE [Suspect]
     Indication: ACUTE LEUKAEMIA
     Dosage: 3600 MG, QD
     Route: 042
     Dates: start: 20100908, end: 20100913
  3. AMSACRINE [Suspect]
     Indication: ACUTE LEUKAEMIA
     Dosage: 220 MG, QDX3
     Route: 042
     Dates: start: 20100911, end: 20100913
  4. VORICONAZOLE [Suspect]
     Indication: PROPHYLAXIS
     Dosage: UNK
     Dates: start: 20100907, end: 20101029
  5. VORICONAZOLE [Suspect]
     Indication: FUNGAL INFECTION
     Dosage: 400 MG, UNK
     Route: 048
     Dates: start: 20100827, end: 20100917

REACTIONS (2)
  - HIP FRACTURE [None]
  - PANCYTOPENIA [None]
